FAERS Safety Report 7766934-5 (Version None)
Quarter: 2011Q3

REPORT INFORMATION
  Report Type: 
  Country: None (occurrence: None)
  Receive Date: 20110922
  Receipt Date: 20110909
  Transmission Date: 20111222
  Serious: No
  Sender: FDA-Public Use
  Company Number: US-B.I. PHARMACEUTICALS,INC./RIDGEFIELD-2011-BP-21915BP

PATIENT
  Age: 81 Year
  Sex: Female

DRUGS (3)
  1. ASPIRIN [Concomitant]
     Indication: CARDIOVASCULAR EVENT PROPHYLAXIS
     Route: 048
  2. PRADAXA [Suspect]
     Indication: ATRIAL FIBRILLATION
     Dosage: 300 MG
     Route: 048
     Dates: start: 20110809
  3. TOVIAZ [Concomitant]
     Indication: URINARY INCONTINENCE
     Route: 048

REACTIONS (2)
  - DIARRHOEA [None]
  - HEADACHE [None]
